FAERS Safety Report 22996063 (Version 2)
Quarter: 2023Q4

REPORT INFORMATION
  Report Type: Spontaneous
  Country: US (occurrence: US)
  Receive Date: 20230927
  Receipt Date: 20231010
  Transmission Date: 20240110
  Serious: Yes (Other)
  Sender: FDA-Public Use
  Company Number: US-LUNDBECK-DKLU3067299

PATIENT
  Age: 7 Year
  Sex: Female
  Weight: 25.8 kg

DRUGS (2)
  1. SABRIL [Suspect]
     Active Substance: VIGABATRIN
     Indication: Infantile spasms
     Route: 048
     Dates: start: 201607, end: 20230904
  2. SABRIL [Suspect]
     Active Substance: VIGABATRIN
     Indication: Lennox-Gastaut syndrome

REACTIONS (4)
  - Seizure [Recovered/Resolved]
  - Crying [Recovered/Resolved]
  - Recalled product administered [Unknown]
  - Product contamination [Unknown]

NARRATIVE: CASE EVENT DATE: 20230801
